FAERS Safety Report 20603266 (Version 4)
Quarter: 2022Q2

REPORT INFORMATION
  Report Type: Spontaneous
  Country: US (occurrence: US)
  Receive Date: 20220316
  Receipt Date: 20220418
  Transmission Date: 20220721
  Serious: Yes (Other)
  Sender: FDA-Public Use
  Company Number: US-GLAXOSMITHKLINE-US2022045584

PATIENT
  Age: 49 Year
  Sex: Female

DRUGS (2)
  1. ZEJULA [Suspect]
     Active Substance: NIRAPARIB
     Indication: Ovarian cancer
     Dosage: 200 MG, QD
     Route: 048
     Dates: start: 20220303, end: 202204
  2. ZEJULA [Suspect]
     Active Substance: NIRAPARIB
     Dosage: 100 MG, QD
     Dates: start: 202204

REACTIONS (19)
  - Angina pectoris [Unknown]
  - Facial paralysis [Unknown]
  - Vomiting [Unknown]
  - Paraesthesia [Not Recovered/Not Resolved]
  - Fatigue [Not Recovered/Not Resolved]
  - Initial insomnia [Unknown]
  - Hypertension [Not Recovered/Not Resolved]
  - Lymphatic disorder [Unknown]
  - Condition aggravated [Unknown]
  - Heart rate increased [Unknown]
  - Gait inability [Unknown]
  - Dyspnoea [Unknown]
  - Nervousness [Unknown]
  - Panic attack [Unknown]
  - Visual impairment [Unknown]
  - Nasopharyngitis [Unknown]
  - Oropharyngeal pain [Unknown]
  - Lymphoedema [Unknown]
  - Product dose omission issue [Recovered/Resolved]

NARRATIVE: CASE EVENT DATE: 20220401
